FAERS Safety Report 16612075 (Version 1)
Quarter: 2019Q3

REPORT INFORMATION
  Report Type: Report from Study
  Country: US (occurrence: US)
  Receive Date: 20190722
  Receipt Date: 20190722
  Transmission Date: 20191004
  Serious: Yes (Hospitalization)
  Sender: FDA-Public Use
  Company Number: US-GILEAD-2019-0419254

PATIENT
  Age: 19 Year
  Sex: Male

DRUGS (4)
  1. MVW COMPLETE FORMULATION D3000 [Concomitant]
  2. AZTREONAM LYSINE [Suspect]
     Active Substance: AZTREONAM LYSINE
     Indication: CYSTIC FIBROSIS
     Dosage: 75 MG, TID, EVERY OTHER MONTH
     Route: 055
     Dates: start: 20151003
  3. FLUTICASONE. [Concomitant]
     Active Substance: FLUTICASONE
  4. FLORASTOR [LACTOBACILLUS ACIDOPHILUS] [Concomitant]

REACTIONS (2)
  - Lung disorder [Unknown]
  - Weight decreased [Unknown]
